FAERS Safety Report 13640557 (Version 2)
Quarter: 2017Q2

REPORT INFORMATION
  Report Type: Report from Study
  Country: US (occurrence: US)
  Receive Date: 20170611
  Receipt Date: 20170615
  Transmission Date: 20170830
  Serious: Yes (Death)
  Sender: FDA-Public Use
  Company Number: US-ROCHE-1946878

PATIENT
  Sex: Female

DRUGS (3)
  1. HERCEPTIN [Suspect]
     Active Substance: TRASTUZUMAB
     Indication: SALIVARY GLAND CANCER
     Route: 065
  2. HERCEPTIN [Suspect]
     Active Substance: TRASTUZUMAB
     Dosage: RECEIVED SUBSEQUENT DOSE ON 30/DEC/2015 AND 20/JAN/2016
     Route: 065
     Dates: start: 20151209
  3. HERCEPTIN [Suspect]
     Active Substance: TRASTUZUMAB
     Indication: METASTASES TO LUNG
     Dosage: RECEIVED SUBSEQUENT DOSE ON 24/JUN/2015
     Route: 065
     Dates: start: 20141217

REACTIONS (2)
  - Off label use [Fatal]
  - Death [Fatal]
